FAERS Safety Report 6544096-X (Version None)
Quarter: 2010Q1

REPORT INFORMATION
  Report Type: 
  Country: None (occurrence: None)
  Receive Date: 20100119
  Receipt Date: 20100119
  Transmission Date: 20100710
  Serious: Yes (Death, Hospitalization)
  Sender: FDA-Public Use
  Company Number: None

PATIENT
  Age: 57 Year
  Sex: Male
  Weight: 125.1 kg

DRUGS (2)
  1. ANGIOMAX [Suspect]
     Indication: CATHETERISATION CARDIAC
     Dosage: ONCE IV BOLUS
     Route: 040
     Dates: start: 20091211, end: 20091211
  2. PRASUGREL -EFFIENT- 10 MG LILLY [Suspect]
     Indication: ACUTE CORONARY SYNDROME
     Dosage: 60 MG ONCE FOLLOWED BY 10 MG DAILY PO
     Route: 048
     Dates: start: 20091211, end: 20091222

REACTIONS (4)
  - EPISTAXIS [None]
  - HAEMATOMA [None]
  - HAEMORRHAGIC CEREBRAL INFARCTION [None]
  - IDIOPATHIC THROMBOCYTOPENIC PURPURA [None]
